FAERS Safety Report 13005502 (Version 2)
Quarter: 2017Q1

REPORT INFORMATION
  Report Type: Spontaneous
  Country: US (occurrence: US)
  Receive Date: 20161207
  Receipt Date: 20170127
  Transmission Date: 20170428
  Serious: No
  Sender: FDA-Public Use
  Company Number: US-JNJFOC-20161104277

PATIENT
  Sex: Female

DRUGS (2)
  1. SIMPONI ARIA [Suspect]
     Active Substance: GOLIMUMAB
     Indication: PSORIATIC ARTHROPATHY
     Dosage: 4ML VIAL (50MG)
     Route: 042
     Dates: start: 2016
  2. SIMPONI ARIA [Suspect]
     Active Substance: GOLIMUMAB
     Indication: PSORIASIS
     Dosage: 4ML VIAL (50MG)
     Route: 042
     Dates: start: 2016

REACTIONS (4)
  - Malaise [Not Recovered/Not Resolved]
  - Off label use [Unknown]
  - Product use issue [Unknown]
  - Psoriasis [Not Recovered/Not Resolved]

NARRATIVE: CASE EVENT DATE: 2016
